FAERS Safety Report 5201344-6 (Version None)
Quarter: 2006Q4

REPORT INFORMATION
  Report Type: 
  Country: None (occurrence: None)
  Receive Date: 20061016
  Receipt Date: 20011110
  Transmission Date: 20070319
  Serious: Yes (Other)
  Sender: FDA-Public Use
  Company Number: PHEH2001US09408

PATIENT
  Age: 59 Year
  Sex: Female

DRUGS (1)
  1. MIACALCIN [Suspect]
     Indication: OSTEOPOROSIS
     Dosage: INTRANASAL

REACTIONS (3)
  - DIARRHOEA [None]
  - FRACTURE [None]
  - GASTROINTESTINAL PAIN [None]
